FAERS Safety Report 8058619-5 (Version None)
Quarter: 2012Q1

REPORT INFORMATION
  Report Type: 
  Country: None (occurrence: None)
  Receive Date: 20120119
  Receipt Date: 20120119
  Transmission Date: 20120608
  Serious: Yes (Hospitalization)
  Sender: FDA-Public Use
  Company Number: None

PATIENT
  Age: 74 Year
  Sex: Female
  Weight: 95.45 kg

DRUGS (11)
  1. ACETAMINOPHEN [Concomitant]
  2. NORVASC [Concomitant]
  3. METFORMIN [Concomitant]
  4. COUMADIN [Suspect]
     Indication: PULMONARY EMBOLISM
     Dosage: 5MG DAILY PO CHRONIC
     Route: 048
  5. COUMADIN [Suspect]
     Indication: DEEP VEIN THROMBOSIS
     Dosage: 5MG DAILY PO CHRONIC
     Route: 048
  6. MOBIC [Suspect]
     Dosage: 15MG DAILY PO CHRONIC
     Route: 048
  7. AVAPRO [Concomitant]
  8. ZOLOFT [Concomitant]
  9. IRON SULFIDE [Concomitant]
  10. VIT C [Concomitant]
  11. CRESTOR [Concomitant]

REACTIONS (5)
  - GASTROINTESTINAL HAEMORRHAGE [None]
  - INTERNATIONAL NORMALISED RATIO INCREASED [None]
  - GASTRIC ULCER [None]
  - HAEMATOCRIT DECREASED [None]
  - COAGULOPATHY [None]
